FAERS Safety Report 5593621-4 (Version None)
Quarter: 2007Q4

REPORT INFORMATION
  Report Type: 
  Country: None (occurrence: None)
  Receive Date: 20071218
  Receipt Date: 20070910
  Transmission Date: 20080405
  Serious: Yes (Hospitalization, Other)
  Sender: FDA-Public Use
  Company Number: 2006151110

PATIENT
  Age: 71 Year
  Sex: Male
  Weight: 68 kg

DRUGS (4)
  1. BEXTRA [Suspect]
     Indication: OSTEOARTHRITIS
     Dosage: 10 MG (10 MG,1 IN 1 D)
     Dates: start: 20041011
  2. BEXTRA [Suspect]
     Indication: PAIN
     Dosage: 10 MG (10 MG,1 IN 1 D)
     Dates: start: 20041011
  3. VIOXX [Suspect]
     Dates: start: 20000710
  4. NITROGLYCERIN [Concomitant]

REACTIONS (1)
  - MYOCARDIAL INFARCTION [None]
